FAERS Safety Report 8546018-9 (Version None)
Quarter: 2012Q3

REPORT INFORMATION
  Report Type: 
  Country: None (occurrence: None)
  Receive Date: 20120727
  Receipt Date: 20111201
  Transmission Date: 20120928
  Serious: No
  Sender: FDA-Public Use
  Company Number: US-ASTRAZENECA-2011SE73192

PATIENT
  Age: 33 Year
  Sex: Female
  Weight: 89.8 kg

DRUGS (4)
  1. KOONOTIN [Concomitant]
     Indication: PANIC ATTACK
  2. SEROQUEL [Suspect]
     Indication: INSOMNIA
     Route: 048
  3. BUSPAR [Concomitant]
     Indication: PANIC ATTACK
  4. ZOLOST [Concomitant]
     Indication: DEPRESSION

REACTIONS (2)
  - INSOMNIA [None]
  - DRUG DOSE OMISSION [None]
